FAERS Safety Report 19873328 (Version 2)
Quarter: 2021Q4

REPORT INFORMATION
  Report Type: Spontaneous
  Country: DE (occurrence: DE)
  Receive Date: 20210922
  Receipt Date: 20211001
  Transmission Date: 20220303
  Serious: Yes (Other)
  Sender: FDA-Public Use
  Company Number: DE-PROCTER+GAMBLE-PH21003302

PATIENT
  Age: 63 Year
  Sex: Male

DRUGS (16)
  1. METOPROLOL [Suspect]
     Active Substance: METOPROLOL
     Indication: Product used for unknown indication
     Dosage: 47.5 MILLIGRAM (47.5 (1 TABLET MIXUP))
     Route: 048
     Dates: start: 20210409, end: 20210409
  2. METOPROLOL [Suspect]
     Active Substance: METOPROLOL
     Dosage: 5 MILLIGRAM (1 TABLET MIX-UP)
     Route: 048
  3. CLOZAPINE [Suspect]
     Active Substance: CLOZAPINE
     Indication: Product used for unknown indication
     Dosage: QD (100 (1 TABLET MIX-UP))
     Route: 048
     Dates: start: 20210409, end: 20210409
  4. PANTOPRAZOLE [Suspect]
     Active Substance: PANTOPRAZOLE
     Indication: Product used for unknown indication
     Dosage: QD (1 TABLET MIX-UP)
     Route: 048
     Dates: start: 20210409, end: 20210409
  5. PIPAMPERONE HYDROCHLORIDE [Suspect]
     Active Substance: PIPAMPERONE HYDROCHLORIDE
     Indication: Product used for unknown indication
     Dosage: QD (1 TABLET MIX-UP)
     Route: 048
     Dates: start: 20210409, end: 20210409
  6. HALDOL [Suspect]
     Active Substance: HALOPERIDOL
     Indication: Product used for unknown indication
     Dosage: QD (5 (1 TABLET MIX-UP))
     Route: 048
     Dates: start: 20210409, end: 20210409
  7. AKINETON [Suspect]
     Active Substance: BIPERIDEN HYDROCHLORIDE
     Indication: Product used for unknown indication
     Dosage: QD (4 (1 TABLET MIX-UP))
     Route: 048
     Dates: start: 20210409, end: 20210409
  8. CHOLECALCIFEROL [Suspect]
     Active Substance: CHOLECALCIFEROL
     Indication: Product used for unknown indication
     Dosage: 1 DOSAGE FORM, QD (1 TABLET MIX-UP)
     Route: 048
     Dates: start: 20210409, end: 20210409
  9. VALPROATE SODIUM [Suspect]
     Active Substance: VALPROATE SODIUM
     Indication: Product used for unknown indication
     Dosage: QD (1 TABLET MIX-UP)
     Route: 048
     Dates: start: 20210409, end: 20210409
  10. LEVETIRACETAM [Concomitant]
     Active Substance: LEVETIRACETAM
     Dosage: 2500 MILLIGRAM, QD (2.5 TABLET, 1 /DAY (1000 MG))
     Route: 048
  11. LAMOTRIGINE [Concomitant]
     Active Substance: LAMOTRIGINE
     Dosage: 5 DOSAGE FORM, QD (5 TABLET, 1 /DAY (25))
     Route: 048
  12. LAMOTRIGINE [Concomitant]
     Active Substance: LAMOTRIGINE
     Dosage: 2 DOSAGE FORM, QD (2 TABLET, 1 /DAY (100))
     Route: 048
     Dates: start: 20210409, end: 20210409
  13. VALPROATE SODIUM [Concomitant]
     Active Substance: VALPROATE SODIUM
     Dosage: 300 (3 TABLET)
     Route: 048
  14. VALPROATE SODIUM [Concomitant]
     Active Substance: VALPROATE SODIUM
     Dosage: 500 (1 TABLET)
     Route: 048
  15. CARBAMAZEPINE [Concomitant]
     Active Substance: CARBAMAZEPINE
     Dosage: 2 DOSAGE FORM, QD (1 TABLET, 2 /DAY (200))
     Route: 048
  16. GASTROZEPIN [Concomitant]
     Active Substance: PIRENZEPINE HYDROCHLORIDE
     Dosage: 1 DOSAGE FORM, QD ((50)1 TABLET, 1 /DAY)
     Route: 048

REACTIONS (7)
  - Generalised tonic-clonic seizure [Recovered/Resolved]
  - Disorientation [Recovering/Resolving]
  - Accidental exposure to product [Unknown]
  - Exposure via ingestion [Unknown]
  - Sopor [Recovering/Resolving]
  - Seizure [Recovering/Resolving]
  - Wrong patient received product [Unknown]

NARRATIVE: CASE EVENT DATE: 20210409
